FAERS Safety Report 6119352-X (Version None)
Quarter: 2009Q1

REPORT INFORMATION
  Report Type: 
  Country: None (occurrence: None)
  Receive Date: 20090316
  Receipt Date: 20090311
  Transmission Date: 20090719
  Serious: Yes (Hospitalization)
  Sender: FDA-Public Use
  Company Number: DE-ABBOTT-09P-062-0558202-00

PATIENT
  Sex: Female

DRUGS (3)
  1. HUMIRA [Suspect]
     Indication: RHEUMATOID ARTHRITIS
     Route: 058
     Dates: start: 20060501, end: 20061120
  2. HUMIRA [Suspect]
     Dates: start: 20081220
  3. ANALGESIC [Concomitant]
     Indication: PAIN

REACTIONS (1)
  - KNEE ARTHROPLASTY [None]
